FAERS Safety Report 9180893 (Version 7)
Quarter: 2013Q3

REPORT INFORMATION
  Report Type: Report from Study
  Country: DE (occurrence: DE)
  Receive Date: 20130322
  Receipt Date: 20130923
  Transmission Date: 20140515
  Serious: Yes (Hospitalization)
  Sender: FDA-Public Use
  Company Number: DE-009507513-1303DEU003380

PATIENT
  Age: 57 Year
  Sex: Male
  Weight: 75 kg

DRUGS (5)
  1. VICTRELIS [Suspect]
     Indication: CHRONIC HEPATITIS C
     Dosage: 800 MG, TID: LAST DOSE PRIOR TO SAE ON 22-APR-2013
     Route: 048
     Dates: start: 20130128
  2. REBETOL [Suspect]
     Indication: CHRONIC HEPATITIS C
     Dosage: 600 MG, TID
     Route: 048
     Dates: start: 20130108
  3. REBETOL [Suspect]
     Dosage: 200 MG, UNK
     Route: 048
     Dates: start: 20130108
  4. PEGINTERFERON ALFA-2A [Suspect]
     Indication: CHRONIC HEPATITIS C
     Dosage: 180 MICROGRAM, QW;LAST DOSE PRIOR TO SAE ON 22-APR-2013
     Route: 058
     Dates: start: 20130108
  5. PEGINTERFERON ALFA-2A [Suspect]
     Dosage: 90 MICROGRAM, QW
     Dates: start: 20130108

REACTIONS (2)
  - Fatigue [Recovered/Resolved]
  - Anaemia [Recovered/Resolved]
